FAERS Safety Report 14830383 (Version 1)
Quarter: 2018Q2

REPORT INFORMATION
  Report Type: Spontaneous
  Country: US (occurrence: US)
  Receive Date: 20180430
  Receipt Date: 20180430
  Transmission Date: 20180711
  Serious: No
  Sender: FDA-Public Use
  Company Number: US-SA-2018SA031707

PATIENT
  Sex: Female

DRUGS (2)
  1. ALIROCUMAB PREFILLED PEN [Suspect]
     Active Substance: ALIROCUMAB
     Indication: BLOOD CHOLESTEROL INCREASED
     Dates: start: 201710
  2. PRALUENT [Suspect]
     Active Substance: ALIROCUMAB
     Indication: BLOOD CHOLESTEROL INCREASED
     Route: 058
     Dates: start: 201710

REACTIONS (3)
  - Pain in extremity [Not Recovered/Not Resolved]
  - Intraocular pressure increased [Not Recovered/Not Resolved]
  - Visual impairment [Not Recovered/Not Resolved]
